FAERS Safety Report 7039498-1 (Version None)
Quarter: 2010Q4

REPORT INFORMATION
  Report Type: 
  Country: None (occurrence: None)
  Receive Date: 20101012
  Receipt Date: 20100923
  Transmission Date: 20110411
  Serious: No
  Sender: FDA-Public Use
  Company Number: A0880500A

PATIENT
  Age: 75 Year
  Sex: Male
  Weight: 70.9 kg

DRUGS (2)
  1. JALYN [Suspect]
     Indication: BENIGN PROSTATIC HYPERPLASIA
     Route: 048
  2. UNKNOWN [Concomitant]

REACTIONS (3)
  - LIP SWELLING [None]
  - RASH [None]
  - URTICARIA [None]
